FAERS Safety Report 7401666-4 (Version None)
Quarter: 2011Q2

REPORT INFORMATION
  Report Type: 
  Country: None (occurrence: None)
  Receive Date: 20110408
  Receipt Date: 20110330
  Transmission Date: 20111010
  Serious: No
  Sender: FDA-Public Use
  Company Number: US-BIOGENIDEC-2011BI011890

PATIENT
  Age: 62 Year
  Sex: Female

DRUGS (3)
  1. XANAX [Concomitant]
     Indication: PRODUCT USED FOR UNKNOWN INDICATION
  2. AVONEX [Suspect]
     Indication: MULTIPLE SCLEROSIS
     Route: 030
     Dates: start: 20040604
  3. FIORCET [Concomitant]
     Indication: HEADACHE

REACTIONS (6)
  - TOOTHACHE [None]
  - CYSTITIS [None]
  - MUSCULOSKELETAL CHEST PAIN [None]
  - SENSORY DISTURBANCE [None]
  - GENERAL SYMPTOM [None]
  - PAIN IN EXTREMITY [None]
